FAERS Safety Report 9128436 (Version 1)
Quarter: 2013Q1

REPORT INFORMATION
  Report Type: Spontaneous
  Country: FR (occurrence: FR)
  Receive Date: 20130228
  Receipt Date: 20130228
  Transmission Date: 20140127
  Serious: Yes (Hospitalization)
  Sender: FDA-Public Use
  Company Number: FR-ASTRAZENECA-2013SE11630

PATIENT
  Age: 19519 Day
  Sex: Female

DRUGS (2)
  1. BRILIQUE [Suspect]
     Indication: ACUTE CORONARY SYNDROME
     Route: 048
     Dates: start: 20121002, end: 20121006
  2. CARDENSIEL [Suspect]
     Indication: ACUTE CORONARY SYNDROME
     Route: 048
     Dates: start: 20121002, end: 20121005

REACTIONS (1)
  - Atrioventricular block complete [Recovered/Resolved]
